FAERS Safety Report 20635999 (Version 1)
Quarter: 2022Q1

REPORT INFORMATION
  Report Type: Spontaneous
  Country: US (occurrence: US)
  Receive Date: 20220325
  Receipt Date: 20220325
  Transmission Date: 20220423
  Serious: No
  Sender: FDA-Public Use
  Company Number: US-MMM-120NSJU5

PATIENT
  Sex: Female

DRUGS (1)
  1. BREO ELLIPTA [Suspect]
     Active Substance: FLUTICASONE FUROATE\VILANTEROL TRIFENATATE
     Indication: Asthma
     Dosage: BREO 100/25
     Route: 055
     Dates: start: 20210319, end: 202201

REACTIONS (3)
  - Dyspnoea [Unknown]
  - Insomnia [Unknown]
  - Cough [Unknown]
